FAERS Safety Report 5730762-2 (Version None)
Quarter: 2008Q2

REPORT INFORMATION
  Report Type: 
  Country: None (occurrence: None)
  Receive Date: 20080507
  Receipt Date: 20080430
  Transmission Date: 20081010
  Serious: Yes (Death)
  Sender: FDA-Public Use
  Company Number: US-BAXTER-2008BH004551

PATIENT
  Sex: Female
  Weight: 54 kg

DRUGS (3)
  1. HEPARIN SODIUM [Suspect]
     Indication: THROMBOSIS PROPHYLAXIS
     Dosage: DOSE UNIT:UNKNOWN
     Route: 010
     Dates: start: 20070401
  2. BLOOD THINNER [Concomitant]
     Indication: DRUG USE FOR UNKNOWN INDICATION
     Route: 065
  3. BLOOD PRESSURE MEDICATIONS [Concomitant]
     Indication: DRUG USE FOR UNKNOWN INDICATION
     Route: 065

REACTIONS (5)
  - ACUTE MYOCARDIAL INFARCTION [None]
  - BREAST SWELLING [None]
  - CARDIOPULMONARY FAILURE [None]
  - INFECTION [None]
  - RENAL FAILURE CHRONIC [None]
